FAERS Safety Report 12431267 (Version 1)
Quarter: 2016Q2

REPORT INFORMATION
  Report Type: Spontaneous
  Country: US (occurrence: US)
  Receive Date: 20160603
  Receipt Date: 20160603
  Transmission Date: 20160815
  Serious: No
  Sender: FDA-Public Use
  Company Number: US-BIOGEN-2016BI00233566

PATIENT
  Sex: Male

DRUGS (1)
  1. AVONEX [Suspect]
     Active Substance: INTERFERON BETA-1A
     Indication: MULTIPLE SCLEROSIS
     Route: 065
     Dates: start: 20120907

REACTIONS (5)
  - Gait disturbance [Recovered/Resolved]
  - Peripheral swelling [Recovered/Resolved]
  - Contusion [Recovered/Resolved]
  - Hypoaesthesia [Recovered/Resolved]
  - Musculoskeletal disorder [Recovered/Resolved]
